FAERS Safety Report 8512805-6 (Version None)
Quarter: 2012Q2

REPORT INFORMATION
  Report Type: 
  Country: None (occurrence: None)
  Receive Date: 20120405
  Receipt Date: 20090501
  Transmission Date: 20120825
  Serious: Yes (Other)
  Sender: FDA-Public Use
  Company Number: PHEH2009US03819

PATIENT
  Age: 78 Year
  Sex: Female
  Weight: 64.4 kg

DRUGS (11)
  1. OMEPRAZOLE [Concomitant]
  2. FLOVENT [Concomitant]
  3. RECLAST [Suspect]
     Indication: OSTEOPOROSIS
     Dosage: 5 MG, INTRAVENOUS
     Route: 042
     Dates: start: 20090316
  4. ALBUTEROL [Concomitant]
  5. ADVAIR HFA [Concomitant]
  6. POTASSIUM CHLORIDE [Concomitant]
  7. HYDROCHLOROTHIAZIDE [Concomitant]
  8. LOVASTATIN [Concomitant]
  9. DOXYCYCLINE [Concomitant]
  10. THYROID TAB [Concomitant]
  11. PREDNISONE TAB [Concomitant]

REACTIONS (5)
  - INFLUENZA LIKE ILLNESS [None]
  - BEDRIDDEN [None]
  - RED BLOOD CELL SEDIMENTATION RATE INCREASED [None]
  - MALAISE [None]
  - PAIN [None]
